FAERS Safety Report 21456644 (Version 2)
Quarter: 2023Q1

REPORT INFORMATION
  Report Type: Other
  Country: CN (occurrence: None)
  Receive Date: 20221014
  Receipt Date: 20230210
  Transmission Date: 20230418
  Serious: Yes (Other)
  Sender: FDA-Public Use
  Company Number: CN-ROCHE-2181362

PATIENT
  Age: 69 Year
  Sex: Male
  Weight: 50 kg

DRUGS (2)
  1. AVASTIN [Suspect]
     Active Substance: BEVACIZUMAB
     Indication: Non-small cell lung cancer
     Route: 041
     Dates: start: 20170724
  2. AVASTIN [Suspect]
     Active Substance: BEVACIZUMAB
     Route: 041
     Dates: start: 20181113, end: 20220719

REACTIONS (8)
  - Weight decreased [Unknown]
  - Lung neoplasm [Not Recovered/Not Resolved]
  - Pulmonary mass [Not Recovered/Not Resolved]
  - Lung disorder [Unknown]
  - Proteinuria [Unknown]
  - Blood creatinine increased [Unknown]
  - Renal impairment [Unknown]
  - Lung neoplasm [Not Recovered/Not Resolved]

NARRATIVE: CASE EVENT DATE: 20211228
